FAERS Safety Report 18624307 (Version 27)
Quarter: 2025Q1

REPORT INFORMATION
  Report Type: Report from Study
  Country: CO (occurrence: CO)
  Receive Date: 20201216
  Receipt Date: 20250307
  Transmission Date: 20250408
  Serious: Yes (Other)
  Sender: TAKEDA
  Company Number: CO-TAKEDA-CO201932652

PATIENT
  Age: 25 Year
  Sex: Female
  Weight: 57 kg

DRUGS (11)
  1. ICATIBANT [Suspect]
     Active Substance: ICATIBANT ACETATE
     Indication: Hereditary angioedema
     Dosage: UNK UNK, Q6HR
     Dates: start: 20160620
  2. ICATIBANT [Suspect]
     Active Substance: ICATIBANT ACETATE
     Dosage: 30 MILLIGRAM, Q6HR
     Dates: start: 20200120
  3. ICATIBANT [Suspect]
     Active Substance: ICATIBANT ACETATE
     Dosage: 30 MILLIGRAM, Q6HR
     Dates: start: 20200208
  4. ICATIBANT [Suspect]
     Active Substance: ICATIBANT ACETATE
  5. ICATIBANT [Suspect]
     Active Substance: ICATIBANT ACETATE
     Dosage: 30 MILLIGRAM, Q6HR
     Dates: start: 20201009
  6. ICATIBANT [Suspect]
     Active Substance: ICATIBANT ACETATE
     Dosage: UNK UNK, Q6HR
  7. ICATIBANT [Suspect]
     Active Substance: ICATIBANT ACETATE
  8. LANADELUMAB [Suspect]
     Active Substance: LANADELUMAB
     Indication: Product used for unknown indication
  9. Dolex C [Concomitant]
     Indication: Influenza
  10. MACRODANTIN [Concomitant]
     Active Substance: NITROFURANTOIN
     Indication: Cystitis
  11. MACRODANTIN [Concomitant]
     Active Substance: NITROFURANTOIN
     Indication: Urinary retention

REACTIONS (16)
  - Uterine haematoma [Unknown]
  - Procedural pain [Unknown]
  - Influenza [Recovering/Resolving]
  - Cystitis [Recovering/Resolving]
  - Weight increased [Unknown]
  - Body height decreased [Unknown]
  - Premature labour [Unknown]
  - Vaginal haemorrhage [Recovered/Resolved]
  - Head injury [Recovering/Resolving]
  - Ear pain [Recovering/Resolving]
  - Pregnancy [Unknown]
  - Product availability issue [Unknown]
  - Off label use [Unknown]
  - Urinary tract infection [Recovered/Resolved]
  - Hereditary angioedema [Recovered/Resolved]
  - Headache [Recovering/Resolving]

NARRATIVE: CASE EVENT DATE: 20191108
